FAERS Safety Report 5669805-3 (Version None)
Quarter: 2008Q1

REPORT INFORMATION
  Report Type: 
  Country: None (occurrence: None)
  Receive Date: 20080314
  Receipt Date: 20080314
  Transmission Date: 20080703
  Serious: Yes (Hospitalization)
  Sender: FDA-Public Use
  Company Number: None

PATIENT
  Age: 64 Year
  Sex: Female
  Weight: 66 kg

DRUGS (8)
  1. GLEEVEC [Suspect]
     Indication: GLIOBLASTOMA MULTIFORME
     Dosage: 400MG QD PO
     Route: 048
     Dates: start: 20080213
  2. HYDROXYUREA [Suspect]
     Indication: GLIOBLASTOMA MULTIFORME
     Dosage: 500 MG BID PO
     Route: 048
     Dates: start: 20080213
  3. ZACTIMA 100MG ASTRA ZENECA [Suspect]
     Indication: GLIOBLASTOMA MULTIFORME
     Dosage: 100MG QD PO
     Route: 048
     Dates: start: 20080213
  4. ZOLPIDEM [Concomitant]
  5. FUROSEMIDE [Concomitant]
  6. GLIPIZIDE [Concomitant]
  7. CYMBALTA [Concomitant]
  8. DECADRON [Concomitant]

REACTIONS (14)
  - ALANINE AMINOTRANSFERASE INCREASED [None]
  - FAECAL INCONTINENCE [None]
  - HAEMOGLOBIN DECREASED [None]
  - HEPATIC ENZYME INCREASED [None]
  - HYPERGLYCAEMIA [None]
  - MUCOSAL INFLAMMATION [None]
  - MUSCULAR WEAKNESS [None]
  - MYOPATHY [None]
  - OESOPHAGEAL CANDIDIASIS [None]
  - ORAL CANDIDIASIS [None]
  - PLATELET COUNT DECREASED [None]
  - URINARY INCONTINENCE [None]
  - WEIGHT DECREASED [None]
  - WHITE BLOOD CELL COUNT INCREASED [None]
